FAERS Safety Report 26122119 (Version 1)
Quarter: 2025Q4

REPORT INFORMATION
  Report Type: Spontaneous
  Country: EU (occurrence: EU)
  Receive Date: 20251204
  Receipt Date: 20251204
  Transmission Date: 20260118
  Serious: Yes (Hospitalization)
  Sender: PURDUE
  Company Number: EU-PURDUE-USA-2025-0322655

PATIENT
  Age: 24 Year
  Sex: Female
  Weight: 62 kg

DRUGS (2)
  1. OXYCODONE HYDROCHLORIDE [Suspect]
     Active Substance: OXYCODONE HYDROCHLORIDE
     Indication: Biliary colic
     Dosage: VB 2.5 MG TABLET OR SUBCUTANEOUS INJECTION. STRENGTH 2,5-5MG, ASNECESSARY
     Route: 065
     Dates: start: 20250920, end: 20250926
  2. ACETAMINOPHEN [Concomitant]
     Active Substance: ACETAMINOPHEN
     Indication: Product used for unknown indication
     Dosage: UNK
     Route: 065

REACTIONS (3)
  - Urinary retention [Recovered/Resolved]
  - Sensory loss [Recovered/Resolved]
  - Anal sphincter atony [Recovered/Resolved]

NARRATIVE: CASE EVENT DATE: 20250922
